FAERS Safety Report 23093733 (Version 1)
Quarter: 2023Q4

REPORT INFORMATION
  Report Type: Report from Study
  Country: US (occurrence: US)
  Receive Date: 20231023
  Receipt Date: 20231023
  Transmission Date: 20240110
  Serious: Yes (Other)
  Sender: FDA-Public Use
  Company Number: US-002147023-NVSC2023US222813

PATIENT
  Sex: Female

DRUGS (2)
  1. ENTRESTO [Suspect]
     Active Substance: SACUBITRIL\VALSARTAN
     Indication: Bundle branch block left
     Dosage: 1 DOSAGE FORM, BID
     Route: 048
     Dates: start: 202310
  2. ENTRESTO [Suspect]
     Active Substance: SACUBITRIL\VALSARTAN
     Indication: Cardiac failure

REACTIONS (6)
  - Dyspnoea [Unknown]
  - Micturition disorder [Unknown]
  - Insomnia [Unknown]
  - Dizziness [Unknown]
  - Respiratory tract congestion [Unknown]
  - Headache [Unknown]
